FAERS Safety Report 5003408-9 (Version None)
Quarter: 2006Q2

REPORT INFORMATION
  Report Type: 
  Country: None (occurrence: None)
  Receive Date: 20060511
  Receipt Date: 20060427
  Transmission Date: 20061013
  Serious: Yes (Hospitalization)
  Sender: FDA-Public Use
  Company Number: CERZ-11216

PATIENT
  Age: 12 Month
  Sex: Male
  Weight: 7 kg

DRUGS (4)
  1. CEREZYME [Suspect]
     Indication: GAUCHER'S DISEASE
     Dosage: 600 UNITS Q2WKS IV
     Route: 042
     Dates: start: 20041102
  2. PHENOBARBITAL TAB [Concomitant]
  3. FAMOTIDINE [Concomitant]
  4. ERYTHROMYCIN [Concomitant]

REACTIONS (2)
  - DISEASE RECURRENCE [None]
  - PNEUMONIA [None]
